FAERS Safety Report 19824975 (Version 1)
Quarter: 2021Q3

REPORT INFORMATION
  Report Type: Spontaneous
  Country: US (occurrence: US)
  Receive Date: 20210914
  Receipt Date: 20210914
  Transmission Date: 20211014
  Serious: No
  Sender: FDA-Public Use
  Company Number: US-JNJFOC-20210900350

PATIENT
  Age: 10 Year
  Sex: Male

DRUGS (1)
  1. CHILDRENS ZYRTEC [Suspect]
     Active Substance: CETIRIZINE HYDROCHLORIDE
     Indication: ACCIDENTAL EXPOSURE TO PRODUCT
     Dosage: 4 FLUID OUNCES
     Route: 048
     Dates: start: 20210829

REACTIONS (2)
  - Accidental exposure to product by child [Unknown]
  - Accidental overdose [Unknown]

NARRATIVE: CASE EVENT DATE: 20210829
